FAERS Safety Report 9660099 (Version 1)
Quarter: 2013Q4

REPORT INFORMATION
  Report Type: Spontaneous
  Country: US (occurrence: US)
  Receive Date: 20131031
  Receipt Date: 20131031
  Transmission Date: 20140711
  Serious: No
  Sender: FDA-Public Use
  Company Number: US-PFIZER INC-2013309977

PATIENT
  Age: 53 Year
  Sex: Male
  Weight: 69.39 kg

DRUGS (5)
  1. LYRICA [Suspect]
     Indication: PERONEAL NERVE INJURY
     Dosage: 150 MG, 1X/DAY
     Dates: start: 200702
  2. LYRICA [Suspect]
     Dosage: 150 MG IN AM, 75 MG IN PM
  3. NORVIR [Suspect]
     Indication: HIV INFECTION
     Dosage: UNK, 1X/DAY
     Dates: start: 2005
  4. TRUVADA [Suspect]
     Indication: HIV INFECTION
     Dosage: UNK, 1X/DAY
     Dates: start: 2005
  5. REYATAZ [Suspect]
     Dosage: UNK, 1X/DAY
     Dates: start: 2005

REACTIONS (5)
  - Off label use [Unknown]
  - Sexual dysfunction [Not Recovered/Not Resolved]
  - Hypoaesthesia [Not Recovered/Not Resolved]
  - T-lymphocyte count increased [Not Recovered/Not Resolved]
  - Blood cholesterol increased [Not Recovered/Not Resolved]
